FAERS Safety Report 24157340 (Version 3)
Quarter: 2024Q4

REPORT INFORMATION
  Report Type: Spontaneous
  Country: US (occurrence: US)
  Receive Date: 20240731
  Receipt Date: 20241125
  Transmission Date: 20250114
  Serious: No
  Sender: PFIZER
  Company Number: US-PFIZER INC-202400223299

PATIENT
  Age: 9 Year
  Sex: Female

DRUGS (1)
  1. GENOTROPIN [Suspect]
     Active Substance: SOMATROPIN
     Dosage: 1.2 MG PER DAY, 7 DAYS PER WEEK

REACTIONS (3)
  - Device mechanical issue [Unknown]
  - Patient-device incompatibility [Unknown]
  - Injection site pain [Unknown]
